FAERS Safety Report 9259605 (Version 3)
Quarter: 2013Q3

REPORT INFORMATION
  Report Type: Spontaneous
  Country: US (occurrence: US)
  Receive Date: 20130429
  Receipt Date: 20130927
  Transmission Date: 20140515
  Serious: Yes (Hospitalization, Disabling, Other)
  Sender: FDA-Public Use
  Company Number: US-ASTRAZENECA-2013SE27638

PATIENT
  Age: 59 Year
  Sex: Female
  Weight: 150.1 kg

DRUGS (13)
  1. NEXIUM [Suspect]
     Indication: GASTROOESOPHAGEAL REFLUX DISEASE
     Dosage: ONCE
     Route: 048
  2. NEXIUM [Suspect]
     Indication: GASTRITIS
     Dosage: ONCE
     Route: 048
  3. NEXIUM [Suspect]
     Indication: GASTROOESOPHAGEAL REFLUX DISEASE
     Route: 048
     Dates: start: 20050502
  4. NEXIUM [Suspect]
     Indication: GASTRITIS
     Route: 048
     Dates: start: 20050502
  5. OMEPRAZOLE [Suspect]
     Indication: GASTROOESOPHAGEAL REFLUX DISEASE
     Route: 048
     Dates: start: 20081012
  6. TRAMADOL HCL [Concomitant]
     Dates: start: 20070418
  7. SULFAMETHOZAZOLE [Concomitant]
     Dates: start: 20071230
  8. PREVPAC [Concomitant]
  9. LOVASTATIN [Concomitant]
     Dates: start: 20100125
  10. ZOLPIDEM TARTRATE [Concomitant]
     Dates: start: 20100125
  11. BUMETANIDE [Concomitant]
     Dates: start: 20100211
  12. GEMFIBROZIL [Concomitant]
     Dates: start: 20100317
  13. MULTAQ [Concomitant]
     Dates: start: 20100424

REACTIONS (12)
  - Neuropathy peripheral [Unknown]
  - Arrhythmia [Unknown]
  - Hand fracture [Unknown]
  - Influenza [Unknown]
  - Fall [Unknown]
  - Malaise [Unknown]
  - Osteoporosis [Unknown]
  - Bone disorder [Unknown]
  - Multiple fractures [Unknown]
  - Diabetes mellitus [Unknown]
  - Humerus fracture [Unknown]
  - Upper limb fracture [Unknown]
